FAERS Safety Report 25071485 (Version 2)
Quarter: 2025Q3

REPORT INFORMATION
  Report Type: Report from Study
  Country: US (occurrence: US)
  Receive Date: 20250312
  Receipt Date: 20250803
  Transmission Date: 20251021
  Serious: Yes (Other)
  Sender: ALEXION PHARMACEUTICALS
  Company Number: US-AstraZeneca-CH-00822331A

PATIENT
  Sex: Male

DRUGS (1)
  1. ACALABRUTINIB [Suspect]
     Active Substance: ACALABRUTINIB
     Indication: Mantle cell lymphoma
     Dosage: 100 MILLIGRAM, QD
     Dates: start: 20240424, end: 20241223

REACTIONS (5)
  - Palpitations [Unknown]
  - Asthenia [Unknown]
  - Dizziness [Unknown]
  - Hypersensitivity [Unknown]
  - Pain [Unknown]
